FAERS Safety Report 9143541 (Version 1)
Quarter: 2013Q1

REPORT INFORMATION
  Report Type: Spontaneous
  Country: US (occurrence: US)
  Receive Date: 20130306
  Receipt Date: 20130306
  Transmission Date: 20140127
  Serious: No
  Sender: FDA-Public Use
  Company Number: US-ENDO PHARMACEUTICALS INC.-OPER20120243

PATIENT
  Sex: Female

DRUGS (2)
  1. OPANA ER [Suspect]
     Indication: BACK PAIN
     Route: 048
     Dates: start: 201201
  2. ENDOCET [Suspect]
     Indication: BREAKTHROUGH PAIN
     Route: 048
     Dates: start: 2011

REACTIONS (2)
  - Depression [Not Recovered/Not Resolved]
  - Crying [Not Recovered/Not Resolved]
